FAERS Safety Report 22532155 (Version 1)
Quarter: 2023Q2

REPORT INFORMATION
  Report Type: Spontaneous
  Country: US (occurrence: US)
  Receive Date: 20230607
  Receipt Date: 20230607
  Transmission Date: 20230721
  Serious: No
  Sender: FDA-Public Use
  Company Number: US-ABBVIE-5280654

PATIENT

DRUGS (1)
  1. LATISSE [Suspect]
     Active Substance: BIMATOPROST
     Indication: Product used for unknown indication
     Dosage: 0.3MG/ML SOL,?3ML?PRODUCT SHOULD BE USED DAILY, 1 DROP PER APPLICATOR AND 1 APPLICATOR PER EYE
     Route: 065

REACTIONS (1)
  - Drug ineffective [Unknown]
